FAERS Safety Report 9386542 (Version 1)
Quarter: 2013Q3

REPORT INFORMATION
  Report Type: Spontaneous
  Country: GB (occurrence: GB)
  Receive Date: 20130708
  Receipt Date: 20130708
  Transmission Date: 20140515
  Serious: Yes (Life-Threatening, Other)
  Sender: FDA-Public Use
  Company Number: GB-BRISTOL-MYERS SQUIBB COMPANY-19071273

PATIENT
  Age: 72 Year
  Sex: Female
  Weight: 69 kg

DRUGS (13)
  1. BYDUREON [Suspect]
     Indication: TYPE 2 DIABETES MELLITUS
     Route: 058
     Dates: start: 20090521, end: 20121029
  2. IVABRADINE [Concomitant]
  3. ATORVASTATIN [Concomitant]
  4. CLOPIDOGREL BISULFATE [Concomitant]
  5. CODEINE PHOSPHATE [Concomitant]
  6. EZETIMIBE [Concomitant]
  7. GABAPENTIN [Concomitant]
  8. LANSOPRAZOLE [Concomitant]
  9. LERCANIDIPINE [Concomitant]
  10. RAMIPRIL [Concomitant]
  11. PARACETAMOL [Concomitant]
  12. TILDIEM [Concomitant]
  13. SALBUTAMOL [Concomitant]

REACTIONS (2)
  - Pancreatic carcinoma [Not Recovered/Not Resolved]
  - Thyroid neoplasm [Unknown]
